FAERS Safety Report 5677745-9 (Version None)
Quarter: 2008Q1

REPORT INFORMATION
  Report Type: 
  Country: None (occurrence: None)
  Receive Date: 20080324
  Receipt Date: 20071218
  Transmission Date: 20080703
  Serious: Yes (Other)
  Sender: FDA-Public Use
  Company Number: US-ABBOTT-07P-163-0430976-00

PATIENT
  Sex: Male
  Weight: 63.56 kg

DRUGS (1)
  1. BIAXIN XL [Suspect]
     Indication: BRONCHITIS
     Route: 048
     Dates: start: 20071211, end: 20071212

REACTIONS (1)
  - STEVENS-JOHNSON SYNDROME [None]
